FAERS Safety Report 20774420 (Version 1)
Quarter: 2022Q2

REPORT INFORMATION
  Report Type: Spontaneous
  Country: US (occurrence: None)
  Receive Date: 20220430
  Receipt Date: 20220430
  Transmission Date: 20220721
  Serious: No
  Sender: FDA-Public Use
  Company Number: None

PATIENT
  Age: 57 Year
  Sex: Female
  Weight: 68.85 kg

DRUGS (7)
  1. NP THYROID [Suspect]
     Active Substance: LEVOTHYROXINE\LIOTHYRONINE
     Indication: Hypothyroidism
     Dosage: OTHER QUANTITY : 1 TABLET(S);?
     Route: 048
  2. NP THYROID [Concomitant]
     Active Substance: LEVOTHYROXINE\LIOTHYRONINE
  3. I am waiting on insurance to give me permission to go back on Armour T [Concomitant]
  4. CALCIUM [Concomitant]
     Active Substance: CALCIUM
  5. MULTI-VITAMIN [Concomitant]
     Active Substance: .ALPHA.-TOCOPHEROL ACETATE, DL-\ASCORBIC ACID\CYANOCOBALAMIN\FLUORIDE ION\FOLIC ACID\NIACIN\PYRIDOXI
  6. COLLAGEN [Concomitant]
  7. Bioten tablets [Concomitant]

REACTIONS (8)
  - Alopecia [None]
  - Onychoclasis [None]
  - Dry skin [None]
  - Lethargy [None]
  - Dyspepsia [None]
  - Sleep disorder [None]
  - Nail disorder [None]
  - Thyroid hormones decreased [None]

NARRATIVE: CASE EVENT DATE: 20220318
